FAERS Safety Report 17721830 (Version 3)
Quarter: 2020Q3

REPORT INFORMATION
  Report Type: Report from Study
  Country: None (occurrence: US)
  Receive Date: 20200429
  Receipt Date: 20200723
  Transmission Date: 20201102
  Serious: Yes (Hospitalization, Other)
  Sender: FDA-Public Use
  Company Number: US-ABBVIE-20K-163-3261637-00

PATIENT
  Age: 30 Year
  Sex: Female
  Weight: 81.72 kg

DRUGS (4)
  1. HUMIRA [Suspect]
     Active Substance: ADALIMUMAB
     Indication: CROHN^S DISEASE
     Route: 058
     Dates: start: 2016, end: 201910
  2. HUMIRA [Suspect]
     Active Substance: ADALIMUMAB
     Route: 058
     Dates: start: 201910, end: 202001
  3. WELLBUTRIN [Concomitant]
     Active Substance: BUPROPION HYDROCHLORIDE
     Indication: PRODUCT USED FOR UNKNOWN INDICATION
  4. PROTONIX [Concomitant]
     Active Substance: PANTOPRAZOLE SODIUM
     Indication: PRODUCT USED FOR UNKNOWN INDICATION

REACTIONS (10)
  - Speech disorder [Unknown]
  - Astigmatism [Unknown]
  - Intestinal obstruction [Recovering/Resolving]
  - Laboratory test abnormal [Unknown]
  - Dysgraphia [Unknown]
  - Drug ineffective [Not Recovered/Not Resolved]
  - Fistula [Unknown]
  - Crohn^s disease [Recovering/Resolving]
  - Visual impairment [Unknown]
  - Drug specific antibody [Unknown]

NARRATIVE: CASE EVENT DATE: 201910
